FAERS Safety Report 5305058-3 (Version None)
Quarter: 2007Q2

REPORT INFORMATION
  Report Type: 
  Country: None (occurrence: None)
  Receive Date: 20070423
  Receipt Date: 20070320
  Transmission Date: 20071010
  Serious: Yes (Hospitalization, Other)
  Sender: FDA-Public Use
  Company Number: US-PFIZER INC-2007001931

PATIENT
  Sex: Female
  Weight: 60.3 kg

DRUGS (3)
  1. BEXTRA [Suspect]
     Indication: BACK PAIN
     Route: 048
  2. BEXTRA [Suspect]
     Indication: NECK PAIN
  3. BEXTRA [Suspect]
     Indication: ARTHRITIS

REACTIONS (5)
  - ANXIETY [None]
  - DEPRESSION [None]
  - HYPERTENSION [None]
  - LIBIDO DECREASED [None]
  - MYOCARDIAL INFARCTION [None]
